FAERS Safety Report 9381180 (Version 1)
Quarter: 2013Q3

REPORT INFORMATION
  Report Type: Spontaneous
  Country: US (occurrence: US)
  Receive Date: 20130703
  Receipt Date: 20130703
  Transmission Date: 20140515
  Serious: No
  Sender: FDA-Public Use
  Company Number: US-BIOGENIDEC-2013BI059506

PATIENT
  Sex: Female

DRUGS (1)
  1. AVONEX [Suspect]
     Indication: ACCIDENTAL EXPOSURE TO PRODUCT
     Dates: start: 20130620, end: 20130620

REACTIONS (3)
  - Injection site haemorrhage [Unknown]
  - Injury associated with device [Not Recovered/Not Resolved]
  - Accidental exposure to product [Unknown]
